FAERS Safety Report 8557642-1 (Version None)
Quarter: 2012Q3

REPORT INFORMATION
  Report Type: 
  Country: None (occurrence: None)
  Receive Date: 20120801
  Receipt Date: 20120724
  Transmission Date: 20120928
  Serious: Yes (Death)
  Sender: FDA-Public Use
  Company Number: US-ALEXION-A201201372

PATIENT
  Sex: Female

DRUGS (1)
  1. SOLIRIS [Suspect]
     Indication: TRANSPLANT REJECTION
     Dosage: 1200 MG, SINGLE
     Route: 042
     Dates: start: 20120608, end: 20120608

REACTIONS (1)
  - SEPSIS [None]
